FAERS Safety Report 11193941 (Version 3)
Quarter: 2015Q3

REPORT INFORMATION
  Report Type: Spontaneous
  Country: TR (occurrence: TR)
  Receive Date: 20150616
  Receipt Date: 20150715
  Transmission Date: 20151125
  Serious: Yes (Hospitalization)
  Sender: FDA-Public Use
  Company Number: TR-ABBVIE-15K-161-1408785-00

PATIENT
  Age: 51 Year
  Sex: Female
  Weight: 65 kg

DRUGS (4)
  1. HUMIRA [Suspect]
     Active Substance: ADALIMUMAB
     Indication: RHEUMATOID ARTHRITIS
     Route: 058
     Dates: start: 2013, end: 201505
  2. METHOTREXATE [Concomitant]
     Active Substance: METHOTREXATE
     Indication: PRODUCT USED FOR UNKNOWN INDICATION
     Dates: start: 2013, end: 201505
  3. DELTACORTRIL [Concomitant]
     Active Substance: PREDNISOLONE
     Indication: RHEUMATOID ARTHRITIS
     Dosage: 15 MG AS MORNING DOSE, 10MG AS EVENING DOSE
     Dates: start: 2013, end: 201505
  4. DELTACORTRIL [Concomitant]
     Active Substance: PREDNISOLONE
     Dosage: 15 MG AS MORNING DOSE, 10MG AS EVENING DOSE

REACTIONS (7)
  - Soft tissue infection [Recovered/Resolved]
  - Decreased appetite [Recovered/Resolved]
  - Sepsis [Recovered/Resolved]
  - Hepatic enzyme increased [Recovered/Resolved]
  - Renal failure [Recovered/Resolved]
  - Staphylococcus test positive [Recovered/Resolved]
  - Cardiac arrest [Recovered/Resolved]

NARRATIVE: CASE EVENT DATE: 201505
